FAERS Safety Report 4439525-1 (Version None)
Quarter: 2004Q3

REPORT INFORMATION
  Report Type: 
  Country: None (occurrence: None)
  Receive Date: 20040901
  Receipt Date: 20040901
  Transmission Date: 20050211
  Serious: Yes (Hospitalization)
  Sender: FDA-Public Use
  Company Number: None

PATIENT
  Sex: Male
  Weight: 97.5234 kg

DRUGS (5)
  1. PLAVIX [Suspect]
     Indication: ANTICOAGULANT THERAPY
     Dosage: 75 MG PO QD
     Route: 048
  2. ASPIRIN [Suspect]
     Dosage: 81 MG PO QD
  3. LIPITOR [Concomitant]
  4. TOPROL-XL [Concomitant]
  5. COLACE [Concomitant]

REACTIONS (2)
  - DIZZINESS [None]
  - FAECES DISCOLOURED [None]
